FAERS Safety Report 5445689-3 (Version None)
Quarter: 2007Q3

REPORT INFORMATION
  Report Type: 
  Country: None (occurrence: None)
  Receive Date: 20070904
  Receipt Date: 20070828
  Transmission Date: 20080115
  Serious: Yes (Other)
  Sender: FDA-Public Use
  Company Number: 13890728

PATIENT
  Sex: Female
  Weight: 63.49 kg

DRUGS (2)
  1. EMSAM [Suspect]
     Dosage: 9 MILLIGRAM, 1/1 DAY
     Dates: start: 20070501
  2. TRANSDERM SCOP [Suspect]
     Dosage: TD;
     Route: 062

REACTIONS (4)
  - DISORIENTATION [None]
  - DRUG INTERACTION [None]
  - INSOMNIA [None]
  - NAUSEA [None]
